FAERS Safety Report 4581469-9 (Version None)
Quarter: 2005Q1

REPORT INFORMATION
  Report Type: 
  Country: None (occurrence: None)
  Receive Date: 20050214
  Receipt Date: 20041029
  Transmission Date: 20050727
  Serious: Yes (Hospitalization, Other)
  Sender: FDA-Public Use
  Company Number: US-GLAXOSMITHKLINE-A0531861A

PATIENT
  Age: 12 Year
  Sex: Female
  Weight: 34.5 kg

DRUGS (2)
  1. LAMICTAL [Suspect]
     Indication: BIPOLAR DISORDER
     Route: 048
     Dates: start: 20041011, end: 20041027
  2. NO CONCURRENT MEDICATIONS [Concomitant]

REACTIONS (3)
  - MEDICATION ERROR [None]
  - ORAL MUCOSAL BLISTERING [None]
  - RASH [None]
